FAERS Safety Report 8785465 (Version 1)
Quarter: 2012Q4

REPORT INFORMATION
  Report Type: 
  Country: US (occurrence: US)
  Receive Date: 20120914
  Receipt Date: 20120914
  Transmission Date: 20130627
  Serious: No
  Sender: FDA-Public Use
  Company Number: US-ASTRAZENECA-2012SE65181

PATIENT
  Age: 57 Year
  Sex: Female

DRUGS (2)
  1. NEXIUM [Suspect]
     Route: 048
  2. PREVACID [Concomitant]

REACTIONS (12)
  - Dyspepsia [Unknown]
  - Pain [Unknown]
  - Muscle tightness [Unknown]
  - Rhinorrhoea [Unknown]
  - Oesophagitis [Unknown]
  - Hernia [Unknown]
  - Aphonia [Unknown]
  - Adverse event [Unknown]
  - Feeling abnormal [Unknown]
  - Vomiting [Unknown]
  - Malaise [Unknown]
  - Drug dose omission [Unknown]
